FAERS Safety Report 19194186 (Version 2)
Quarter: 2021Q2

REPORT INFORMATION
  Report Type: Spontaneous
  Country: PT (occurrence: PT)
  Receive Date: 20210429
  Receipt Date: 20210520
  Transmission Date: 20210717
  Serious: Yes (Hospitalization, Other)
  Sender: FDA-Public Use
  Company Number: PT-SUN PHARMACEUTICAL INDUSTRIES LTD-2020RR-243921

PATIENT
  Age: 70 Year
  Sex: Female

DRUGS (5)
  1. PREDNISOLONE. [Suspect]
     Active Substance: PREDNISOLONE
     Indication: PLASMA CELL MYELOMA
     Dosage: UNK
     Route: 065
  2. PREDNISONE. [Suspect]
     Active Substance: PREDNISONE
     Indication: PLASMA CELL MYELOMA
     Dosage: ON DAYS 1,2,3,AND 4  OF 21?DAY CYCLE
     Route: 048
  3. CYCLOPHOSPHAMIDE. [Suspect]
     Active Substance: CYCLOPHOSPHAMIDE
     Indication: PLASMA CELL MYELOMA
     Dosage: UNK
     Route: 065
  4. BORTEZOMIB. [Suspect]
     Active Substance: BORTEZOMIB
     Indication: PLASMA CELL MYELOMA
     Dosage: 1.3 MILLIGRAM/SQ. METER, INJECTION, UNK
     Route: 058
  5. MELPHALAN. [Suspect]
     Active Substance: MELPHALAN
     Indication: PLASMA CELL MYELOMA
     Dosage: 1, 2, 3, AND 4 OF A 21 DAY CYCLE
     Route: 048

REACTIONS (11)
  - Renal failure [Unknown]
  - Pleural effusion [Unknown]
  - Condition aggravated [Unknown]
  - Posterior reversible encephalopathy syndrome [Unknown]
  - Disease progression [Unknown]
  - Nephropathy [Unknown]
  - Pericardial effusion [Unknown]
  - Pulmonary oedema [Unknown]
  - Cardiac failure acute [Unknown]
  - Thrombotic microangiopathy [Recovered/Resolved]
  - Cardiac failure [Unknown]
